FAERS Safety Report 6669220-X (Version None)
Quarter: 2010Q2

REPORT INFORMATION
  Report Type: 
  Country: None (occurrence: None)
  Receive Date: 20100402
  Receipt Date: 20100323
  Transmission Date: 20101027
  Serious: Yes (Other)
  Sender: FDA-Public Use
  Company Number: 233019J10USA

PATIENT
  Age: 59 Year
  Sex: Female
  Weight: 70 kg

DRUGS (13)
  1. REBIF [Suspect]
     Indication: MULTIPLE SCLEROSIS
     Dosage: 44 MCG, 3 IN 1 WEEKS, SUBCUTANEOUS
     Route: 058
     Dates: start: 20081011
  2. ACTONEL [Concomitant]
  3. OMEPRAZOLE [Concomitant]
  4. TYLENOL [Concomitant]
  5. ZOCOR [Concomitant]
  6. ATIVAN [Concomitant]
  7. SYMBICORT (BUDESONIDE W/FORMETEROL FUMARATE) [Concomitant]
  8. SINGULAIR [Concomitant]
  9. MIRALAX [Concomitant]
  10. MULTI-VITAMINS [Concomitant]
  11. FISH OIL (FISH OIL) [Concomitant]
  12. LIQUID CALCIUM (CALCIUM) [Concomitant]
  13. FLEXERIL [Concomitant]

REACTIONS (5)
  - BACK PAIN [None]
  - INSOMNIA [None]
  - MULTIPLE MYELOMA [None]
  - NON-CARDIAC CHEST PAIN [None]
  - PAIN IN EXTREMITY [None]
